FAERS Safety Report 12824110 (Version 1)
Quarter: 2016Q4

REPORT INFORMATION
  Report Type: Spontaneous
  Country: US (occurrence: US)
  Receive Date: 20161006
  Receipt Date: 20161006
  Transmission Date: 20170207
  Serious: No
  Sender: FDA-Public Use
  Company Number: None

PATIENT
  Age: 82 Year
  Weight: 54.9 kg

DRUGS (4)
  1. VITAMIN D3 2000 IU [Concomitant]
  2. KLONOPIN [Suspect]
     Active Substance: CLONAZEPAM
     Indication: ANXIETY
     Dosage: ?          QUANTITY:1 TABLET(S);?
     Route: 048
  3. IRON SUPPLEMENT [Concomitant]
     Active Substance: IRON
  4. BABY ASPIRIN [Concomitant]
     Active Substance: ASPIRIN

REACTIONS (3)
  - Product substitution issue [None]
  - Drug ineffective [None]
  - Product physical issue [None]
